FAERS Safety Report 22709566 (Version 11)
Quarter: 2024Q1

REPORT INFORMATION
  Report Type: Report from Study
  Country: US (occurrence: US)
  Receive Date: 20230717
  Receipt Date: 20240322
  Transmission Date: 20240410
  Serious: Yes (Hospitalization, Other)
  Sender: FDA-Public Use
  Company Number: US-ACADIA PHARMACEUTICALS INC.-ACA-2023-TRF-002835

PATIENT
  Age: 8 Year
  Sex: Female

DRUGS (26)
  1. DAYBUE [Suspect]
     Active Substance: TROFINETIDE
     Indication: Rett syndrome
     Dosage: 30 MILLILITER, BID VIA G TUBE
     Dates: start: 20230615, end: 20230622
  2. DAYBUE [Suspect]
     Active Substance: TROFINETIDE
     Dosage: 2.5 ML BID FOR 2 WEEKS VIA G-TUBE
     Dates: start: 20230805, end: 202308
  3. DAYBUE [Suspect]
     Active Substance: TROFINETIDE
     Dosage: 5 MILLILITER, BID VIA G-TUBE
     Dates: start: 202308
  4. DAYBUE [Suspect]
     Active Substance: TROFINETIDE
     Dosage: 10 MILLILITER, BID VIA G-TUBE
  5. DAYBUE [Suspect]
     Active Substance: TROFINETIDE
     Dosage: 30 MILLILITER, BID VIA G-TUBE
  6. VENTOLIN HFA [Concomitant]
     Active Substance: ALBUTEROL SULFATE
     Indication: Wheezing
     Dosage: 90MCG, 2 PUFF INHALED EVERY 4 HOUR AS NEEDED
     Dates: start: 20230620
  7. CETIRIZINE [Concomitant]
     Active Substance: CETIRIZINE HYDROCHLORIDE
     Dosage: 10 MG TABLET, TAKE 0.5 TABLET DAILY
     Route: 048
     Dates: start: 20230620
  8. FLONASE [Concomitant]
     Active Substance: FLUTICASONE PROPIONATE
     Dosage: 50 MCG, 1 SPRAY EACH NOSTRIL, BID, USE WITH CURRENT ILLNESS, CAN GIVE NASAL SALINE PRIOR
     Dates: start: 20230620
  9. FLOVENT HFA [Concomitant]
     Active Substance: FLUTICASONE PROPIONATE
     Dosage: 110 MCG, 2 PUFF BID, USE WITH SPACER CHAMBER AND THROAT AFTER USE
     Dates: start: 20230620
  10. KEPPRA [Concomitant]
     Active Substance: LEVETIRACETAM
     Dosage: 750 MILLIGRAM, BID
     Route: 048
     Dates: start: 20230315
  11. LAMICTAL [Concomitant]
     Active Substance: LAMOTRIGINE
     Dosage: 50 MILLIGRAM, BID
     Route: 048
     Dates: start: 20230315
  12. VITAMIN D3 [Concomitant]
     Active Substance: CHOLECALCIFEROL
     Dosage: 2000 IU, 50 MCG, 2 TABLET VIA G-TUBE DAILY
     Dates: start: 20230118
  13. ACETAMINOPHEN [Concomitant]
     Active Substance: ACETAMINOPHEN
     Indication: Pain
     Dosage: 160 MG/5 ML VIA G TUBE Q6H
     Dates: start: 20221019
  14. BIFIDOBACTERIUM BIFIDUM [Concomitant]
     Active Substance: BIFIDOBACTERIUM BIFIDUM
     Dosage: DISSOLVE IN WATER BEFORE TAKING WITH VITAMIN
     Dates: start: 20220316
  15. CALCIUM CARBONATE [Concomitant]
     Active Substance: CALCIUM CARBONATE
     Dosage: 500 MILLIGRAM, TID, 10 DAYS BEFORE INFUSION AND 10 DAYS AFTER INFUSION
     Route: 048
     Dates: start: 20221213
  16. VALTOCO [Concomitant]
     Active Substance: DIAZEPAM
     Dosage: 5 MG INTRANASAL ONE SPRAY IN ONE NOSTRIL FOR GTC }3 MIN OR CLUSTERS OF SEIZURES } 3 PER HOUR. A SECO
     Dates: start: 20220919
  17. GLYCERIN INFANTILE [Concomitant]
     Dosage: 1 SUPP, PR, DAILY
     Dates: start: 20210621
  18. IBUPROFEN [Concomitant]
     Active Substance: IBUPROFEN
     Indication: Pain
     Dosage: 100 MG/5 ML VIA G TUBE Q6H
  19. ATROVENT [Concomitant]
     Active Substance: IPRATROPIUM BROMIDE
     Dosage: 17MCG, 2 PUFFS, Q 8H
     Dates: start: 20230709
  20. IPRATROPIUM [Concomitant]
     Active Substance: IPRATROPIUM
     Indication: Increased upper airway secretion
     Dosage: 2 SPRAYS TO BUCCAL MUCOSA 3 TIMES A DAY AS NEEDED
     Dates: start: 20230620
  21. LANSOPRAZOLE [Concomitant]
     Active Substance: LANSOPRAZOLE
     Dosage: 15 MILLIGRAM, QD
     Route: 048
     Dates: start: 20230315
  22. FLINTSTONES MULTIVITAMINS WITH IRON [Concomitant]
     Dosage: 1 TABLET CRUSHED DAILY VIA G-TUBE
     Dates: start: 20220708
  23. MIRALAX [Concomitant]
     Active Substance: POLYETHYLENE GLYCOL 3350
     Dosage: 1/2 CAP DAILY PRN
     Dates: start: 20220615
  24. LAMOTRIGINE [Concomitant]
     Active Substance: LAMOTRIGINE
     Dosage: 50 MILLIGRAM, BID
     Route: 048
     Dates: start: 20230315
  25. SODIUM CHLORIDE [Concomitant]
     Active Substance: SODIUM CHLORIDE
     Dosage: 5 ML, NEB, Q8H
     Dates: start: 20230709
  26. KENALOG [Concomitant]
     Active Substance: TRIAMCINOLONE ACETONIDE
     Dosage: 1 APPL, TOPICAL, TID
     Route: 061
     Dates: start: 20210330

REACTIONS (15)
  - Scoliosis [Not Recovered/Not Resolved]
  - Post procedural complication [Not Recovered/Not Resolved]
  - Scoliosis surgery [Not Recovered/Not Resolved]
  - Pneumonia [Not Recovered/Not Resolved]
  - Acute respiratory failure [Recovered/Resolved]
  - Metapneumovirus pneumonia [Recovered/Resolved]
  - Metapneumovirus infection [Recovered/Resolved]
  - Pyrexia [Recovered/Resolved]
  - Blood potassium decreased [Unknown]
  - Underdose [Not Recovered/Not Resolved]
  - Product dose omission issue [Not Recovered/Not Resolved]
  - Diarrhoea [Not Recovered/Not Resolved]
  - Diarrhoea [Not Recovered/Not Resolved]
  - Diarrhoea [Not Recovered/Not Resolved]
  - Diarrhoea [Not Recovered/Not Resolved]

NARRATIVE: CASE EVENT DATE: 20230706
